FAERS Safety Report 16455934 (Version 6)
Quarter: 2020Q3

REPORT INFORMATION
  Report Type: Spontaneous
  Country: DE (occurrence: DE)
  Receive Date: 20190619
  Receipt Date: 20200624
  Transmission Date: 20201104
  Serious: Yes (Life-Threatening, Hospitalization, Other)
  Sender: FDA-Public Use
  Company Number: PHHY2019DE139225

PATIENT
  Age: 70 Year
  Sex: Female
  Weight: 85.7 kg

DRUGS (45)
  1. CYCLOPHOSPHAMIDE. [Suspect]
     Active Substance: CYCLOPHOSPHAMIDE
     Indication: DIFFUSE LARGE B-CELL LYMPHOMA
     Dosage: UNK
     Route: 065
     Dates: start: 201610, end: 201703
  2. POLATUZUMAB VEDOTIN. [Suspect]
     Active Substance: POLATUZUMAB VEDOTIN
     Indication: DIFFUSE LARGE B-CELL LYMPHOMA
     Dosage: 1ST CYCLE
     Route: 065
     Dates: start: 201901, end: 201901
  3. METOPROLOL SUCCINATE. [Concomitant]
     Active Substance: METOPROLOL SUCCINATE
     Indication: PRODUCT USED FOR UNKNOWN INDICATION
     Dosage: 95 MG, QD
     Route: 065
  4. OXYCODONE HYDROCHLORIDE. [Concomitant]
     Active Substance: OXYCODONE HYDROCHLORIDE
     Dosage: 10 MG, QD
     Route: 065
  5. RITUXIMAB. [Suspect]
     Active Substance: RITUXIMAB
     Dosage: UNK
     Route: 065
     Dates: start: 20180103, end: 20180117
  6. DEXAMETHASONE. [Suspect]
     Active Substance: DEXAMETHASONE
     Dosage: UNK, CYCLIC (SECOND CYCLE)
     Route: 065
     Dates: start: 201801, end: 201802
  7. POLATUZUMAB VEDOTIN. [Suspect]
     Active Substance: POLATUZUMAB VEDOTIN
     Dosage: 3RD CYCLE
     Route: 065
     Dates: start: 20190502, end: 20190502
  8. PREGABALIN. [Concomitant]
     Active Substance: PREGABALIN
     Dosage: 50 MG, QD
     Route: 065
  9. RITUXIMAB. [Suspect]
     Active Substance: RITUXIMAB
     Indication: DIFFUSE LARGE B-CELL LYMPHOMA
     Dosage: UNK
     Route: 065
     Dates: start: 201610, end: 201703
  10. RITUXIMAB. [Suspect]
     Active Substance: RITUXIMAB
     Dosage: 1ST CYCLE
     Route: 065
     Dates: start: 201901, end: 201901
  11. RITUXIMAB. [Suspect]
     Active Substance: RITUXIMAB
     Dosage: 375 MG/M2
     Route: 065
     Dates: start: 20191203, end: 20191203
  12. BENDAMUSTINE [Suspect]
     Active Substance: BENDAMUSTINE
     Indication: DIFFUSE LARGE B-CELL LYMPHOMA
     Dosage: UNK UNK, CYCLIC (1ST CYCLE)
     Route: 042
     Dates: start: 201901, end: 201901
  13. BENDAMUSTINE [Suspect]
     Active Substance: BENDAMUSTINE
     Dosage: 4TH CYCLE
     Route: 065
     Dates: start: 20190911
  14. PREDNISONE. [Suspect]
     Active Substance: PREDNISONE
     Indication: DIFFUSE LARGE B-CELL LYMPHOMA
     Dosage: UNK (5 MONTHS)
     Route: 065
     Dates: start: 201610, end: 201703
  15. RITUXIMAB. [Suspect]
     Active Substance: RITUXIMAB
     Dosage: 2ND CYCLE
     Route: 065
     Dates: start: 20190403, end: 20190403
  16. CISPLATIN. [Suspect]
     Active Substance: CISPLATIN
     Indication: DIFFUSE LARGE B-CELL LYMPHOMA
     Dosage: UNK, CYCLIC (FIRST CYCLE)
     Route: 065
     Dates: start: 20180103, end: 20180117
  17. BENDAMUSTINE [Suspect]
     Active Substance: BENDAMUSTINE
     Dosage: 2ND CYCLE
     Route: 065
     Dates: start: 20190403, end: 20190403
  18. VALSARTAN. [Concomitant]
     Active Substance: VALSARTAN
     Indication: PRODUCT USED FOR UNKNOWN INDICATION
     Dosage: 160 MG, QD
     Route: 065
  19. PREGABALIN. [Concomitant]
     Active Substance: PREGABALIN
     Dosage: 100 MG, QD
     Route: 065
  20. OXYCODONE HYDROCHLORIDE. [Concomitant]
     Active Substance: OXYCODONE HYDROCHLORIDE
     Indication: PRODUCT USED FOR UNKNOWN INDICATION
     Dosage: 20 MG, QD
     Route: 065
  21. SALBUTAMOL [Concomitant]
     Active Substance: ALBUTEROL
     Indication: PRODUCT USED FOR UNKNOWN INDICATION
     Dosage: 200 UG, PRN
     Route: 065
  22. ONCOVIN [Suspect]
     Active Substance: VINCRISTINE SULFATE
     Indication: DIFFUSE LARGE B-CELL LYMPHOMA
     Dosage: UNK
     Route: 065
     Dates: start: 201610, end: 201703
  23. PREGABALIN. [Concomitant]
     Active Substance: PREGABALIN
     Indication: PRODUCT USED FOR UNKNOWN INDICATION
     Dosage: 300 MG, QD
     Route: 065
  24. GABAPENTIN. [Concomitant]
     Active Substance: GABAPENTIN
     Indication: PRODUCT USED FOR UNKNOWN INDICATION
     Dosage: 1800 MG, QD
     Route: 065
  25. GABAPENTIN. [Concomitant]
     Active Substance: GABAPENTIN
     Dosage: 600 MG, QD
     Route: 065
  26. CISPLATIN. [Suspect]
     Active Substance: CISPLATIN
     Dosage: UNK, CYCLIC (SECOND CYCLE)
     Route: 065
     Dates: start: 201801, end: 201802
  27. CYTARABINE. [Suspect]
     Active Substance: CYTARABINE
     Indication: DIFFUSE LARGE B-CELL LYMPHOMA
     Dosage: UNK, CYCLIC (SECOND CYCLE)
     Route: 065
     Dates: start: 201801, end: 201802
  28. HYDROXYDAUNORUBICIN [Suspect]
     Active Substance: DOXORUBICIN
     Indication: DIFFUSE LARGE B-CELL LYMPHOMA
     Dosage: UNK
     Route: 065
     Dates: start: 201610, end: 201703
  29. METOPROLOL SUCCINATE. [Concomitant]
     Active Substance: METOPROLOL SUCCINATE
     Dosage: 47.5 MG, QD
     Route: 065
  30. AVALOX [Concomitant]
     Active Substance: MOXIFLOXACIN HYDROCHLORIDE
     Indication: PRODUCT USED FOR UNKNOWN INDICATION
     Dosage: 400 MG, QD
     Route: 065
     Dates: start: 20190513
  31. PANTOPRAZOLE [Concomitant]
     Active Substance: PANTOPRAZOLE
     Indication: PRODUCT USED FOR UNKNOWN INDICATION
     Dosage: 40 MG, QD
     Route: 065
  32. VOMEX A [Concomitant]
     Active Substance: DIMENHYDRINATE
     Indication: PRODUCT USED FOR UNKNOWN INDICATION
     Dosage: 50 MG, PRN
     Route: 065
  33. RITUXIMAB. [Suspect]
     Active Substance: RITUXIMAB
     Dosage: 375 MG/M2, CYCLIC (4TH CYCLE)
     Route: 065
     Dates: start: 20190910, end: 20190910
  34. DEXAMETHASONE. [Suspect]
     Active Substance: DEXAMETHASONE
     Indication: DIFFUSE LARGE B-CELL LYMPHOMA
     Dosage: UNK, CYCLIC (FIRST CYCLE)
     Route: 065
     Dates: start: 20180103, end: 20180117
  35. BENDAMUSTINE [Suspect]
     Active Substance: BENDAMUSTINE
     Dosage: UNK UNK, CYCLIC (3RD CYCLE)
     Route: 042
     Dates: start: 20190502
  36. POLATUZUMAB VEDOTIN. [Suspect]
     Active Substance: POLATUZUMAB VEDOTIN
     Dosage: 2ND CYCLE
     Route: 065
     Dates: start: 20190403, end: 20190403
  37. POLATUZUMAB VEDOTIN. [Suspect]
     Active Substance: POLATUZUMAB VEDOTIN
     Dosage: 5TH CYCLE
     Route: 065
     Dates: start: 20190911, end: 20190911
  38. METAMIZOLE [Concomitant]
     Active Substance: METAMIZOLE
     Indication: PRODUCT USED FOR UNKNOWN INDICATION
     Dosage: 500 MG, PRN
     Route: 065
  39. EDOXABAN [Concomitant]
     Active Substance: EDOXABAN TOSYLATE
     Indication: PRODUCT USED FOR UNKNOWN INDICATION
     Dosage: 60 MG, QD
     Route: 065
  40. INNOHEP [Concomitant]
     Active Substance: TINZAPARIN SODIUM
     Indication: PRODUCT USED FOR UNKNOWN INDICATION
     Dosage: 1 OT, QD (16 000 IU/0.8 ML0
     Route: 058
  41. RITUXIMAB. [Suspect]
     Active Substance: RITUXIMAB
     Dosage: UNK UNK, QMO
     Route: 065
     Dates: start: 201801, end: 201802
  42. RITUXIMAB. [Suspect]
     Active Substance: RITUXIMAB
     Dosage: UNK (3RD CYCLE)
     Route: 065
     Dates: start: 20190502
  43. POLATUZUMAB VEDOTIN. [Suspect]
     Active Substance: POLATUZUMAB VEDOTIN
     Dosage: 4TH CYCLE
     Route: 065
     Dates: start: 20190910, end: 20190910
  44. AMITRIPTYLIN [Concomitant]
     Active Substance: AMITRIPTYLINE
     Indication: PRODUCT USED FOR UNKNOWN INDICATION
     Dosage: 10 MG, QD
     Route: 065
  45. INNOHEP [Concomitant]
     Active Substance: TINZAPARIN SODIUM
     Dosage: 16 000 IU/0.8 ML
     Route: 058

REACTIONS (20)
  - Otitis media [Recovered/Resolved]
  - Diarrhoea [Recovering/Resolving]
  - Infection [Unknown]
  - Enterococcal infection [Unknown]
  - Pyrexia [Unknown]
  - Urinary tract infection [Unknown]
  - Meningioma [Unknown]
  - Adjustment disorder [Unknown]
  - Diffuse large B-cell lymphoma recurrent [Unknown]
  - Pneumonia [Recovering/Resolving]
  - Parainfluenzae virus infection [Recovering/Resolving]
  - Decreased appetite [Unknown]
  - Asthenia [Not Recovered/Not Resolved]
  - Pulmonary embolism [Recovering/Resolving]
  - Neuralgia [Not Recovered/Not Resolved]
  - Nerve injury [Not Recovered/Not Resolved]
  - General physical health deterioration [Unknown]
  - Herpes zoster [Not Recovered/Not Resolved]
  - Product use in unapproved indication [Unknown]
  - Dysuria [Recovered/Resolved]

NARRATIVE: CASE EVENT DATE: 201711
